FAERS Safety Report 5603261-6 (Version None)
Quarter: 2008Q1

REPORT INFORMATION
  Report Type: 
  Country: None (occurrence: None)
  Receive Date: 20080125
  Receipt Date: 20080116
  Transmission Date: 20080703
  Serious: Yes (Hospitalization)
  Sender: FDA-Public Use
  Company Number: AU-PFIZER INC-2008005941

PATIENT
  Sex: Female

DRUGS (1)
  1. LYRICA [Suspect]
     Indication: EPILEPSY

REACTIONS (5)
  - BALANCE DISORDER [None]
  - COORDINATION ABNORMAL [None]
  - DYSSTASIA [None]
  - SENSORY LOSS [None]
  - URINE ODOUR ABNORMAL [None]
